FAERS Safety Report 10225042 (Version 1)
Quarter: 2014Q2

REPORT INFORMATION
  Report Type: Spontaneous
  Country: CH (occurrence: CH)
  Receive Date: 20140609
  Receipt Date: 20140609
  Transmission Date: 20141212
  Serious: Yes (Other)
  Sender: FDA-Public Use
  Company Number: PHHY2014CH069409

PATIENT
  Age: 21 Year
  Sex: Female
  Weight: 66 kg

DRUGS (2)
  1. FOCALIN [Suspect]
     Indication: ATTENTION DEFICIT/HYPERACTIVITY DISORDER
     Dosage: UNK UKN, UNK
     Dates: start: 201311, end: 20140220
  2. FOCALIN [Suspect]
     Dosage: UNK UKN, UNK

REACTIONS (1)
  - Venous thrombosis [Recovering/Resolving]
